FAERS Safety Report 7512806-0 (Version None)
Quarter: 2011Q2

REPORT INFORMATION
  Report Type: 
  Country: None (occurrence: None)
  Receive Date: 20110531
  Receipt Date: 20110524
  Transmission Date: 20111010
  Serious: Yes (Other)
  Sender: FDA-Public Use
  Company Number: B0722992A

PATIENT
  Sex: Male

DRUGS (3)
  1. VALTREX [Suspect]
     Dosage: 500MG PER DAY
     Route: 048
     Dates: start: 20100101
  2. TRAZODONE HCL [Suspect]
     Indication: SLEEP DISORDER
     Dosage: 200MG AT NIGHT
     Route: 048
     Dates: start: 20110501
  3. IBRUPROFEN [Concomitant]
     Dosage: 600MG AS REQUIRED
     Dates: start: 20110201

REACTIONS (3)
  - DEPRESSED LEVEL OF CONSCIOUSNESS [None]
  - SOMNOLENCE [None]
  - DRUG INTERACTION [None]
